FAERS Safety Report 5752413-3 (Version None)
Quarter: 2008Q2

REPORT INFORMATION
  Report Type: 
  Country: None (occurrence: None)
  Receive Date: 20080529
  Receipt Date: 20080520
  Transmission Date: 20081010
  Serious: Yes (Hospitalization)
  Sender: FDA-Public Use
  Company Number: B0509371A

PATIENT
  Age: 68 Year
  Sex: Female

DRUGS (14)
  1. FORTUM [Suspect]
     Indication: DRUG USE FOR UNKNOWN INDICATION
     Dosage: 1G THREE TIMES PER DAY
     Route: 042
     Dates: start: 20070924, end: 20071005
  2. GENTAMICIN [Suspect]
     Indication: DRUG USE FOR UNKNOWN INDICATION
     Dosage: 80MG TWICE PER DAY
     Route: 048
     Dates: start: 20070924, end: 20071003
  3. ZELITREX [Concomitant]
     Indication: DRUG USE FOR UNKNOWN INDICATION
     Dosage: 500MG TWICE PER DAY
     Route: 048
  4. VENTOLIN [Concomitant]
     Indication: DRUG USE FOR UNKNOWN INDICATION
     Dosage: 5MG THREE TIMES PER DAY
     Route: 065
     Dates: start: 20070924
  5. LASILIX [Concomitant]
     Indication: DRUG USE FOR UNKNOWN INDICATION
     Dosage: 40MG PER DAY
     Route: 048
     Dates: start: 20071005
  6. PREDNISONE [Concomitant]
     Indication: DRUG USE FOR UNKNOWN INDICATION
     Dosage: 20MG PER DAY
     Route: 048
     Dates: end: 20071020
  7. DOLIPRANE [Concomitant]
     Indication: DRUG USE FOR UNKNOWN INDICATION
     Dosage: 1000MG THREE TIMES PER DAY
     Route: 048
  8. CALCIPARINE [Concomitant]
     Indication: DRUG USE FOR UNKNOWN INDICATION
     Dosage: 7500IU TWICE PER DAY
     Route: 058
     Dates: start: 20070921
  9. SOLU-MEDROL [Concomitant]
     Indication: DRUG USE FOR UNKNOWN INDICATION
     Dosage: 20MG TWICE PER DAY
     Route: 042
     Dates: start: 20070924, end: 20071004
  10. ISOPTIN [Concomitant]
     Indication: DRUG USE FOR UNKNOWN INDICATION
     Dosage: 120MG THREE TIMES PER DAY
     Route: 048
     Dates: start: 20070927
  11. ALDACTONE [Concomitant]
     Indication: DRUG USE FOR UNKNOWN INDICATION
     Dosage: 25MG PER DAY
     Route: 048
     Dates: start: 20070919, end: 20071004
  12. CORDARONE [Concomitant]
     Indication: DRUG USE FOR UNKNOWN INDICATION
     Dosage: 200MG ALTERNATE DAYS
     Route: 048
     Dates: end: 20071027
  13. CACIT VITAMINE D3 [Concomitant]
     Indication: OSTEOPOROSIS PROPHYLAXIS
     Route: 048
  14. NULYTELY [Concomitant]
     Indication: CONSTIPATION
     Route: 048

REACTIONS (2)
  - DRUG INTERACTION [None]
  - RENAL FAILURE [None]
